FAERS Safety Report 6017643-4 (Version None)
Quarter: 2008Q4

REPORT INFORMATION
  Report Type: 
  Country: None (occurrence: None)
  Receive Date: 20081223
  Receipt Date: 20081216
  Transmission Date: 20090506
  Serious: Yes (Other)
  Sender: FDA-Public Use
  Company Number: US-GENENTECH-274067

PATIENT
  Sex: Female

DRUGS (3)
  1. AVASTIN [Suspect]
     Indication: BREAST CANCER
     Dosage: UNK MG, UNK
  2. DOCETAXEL [Suspect]
     Indication: BREAST CANCER
     Dosage: 37.5 MG, UNK
     Dates: start: 20080618
  3. CORTICOSTEROIDS (UNK INGREDIENTS) [Concomitant]
     Indication: PREMEDICATION

REACTIONS (1)
  - GENERALISED OEDEMA [None]
